FAERS Safety Report 5491829-X (Version None)
Quarter: 2007Q4

REPORT INFORMATION
  Report Type: 
  Country: None (occurrence: None)
  Receive Date: 20071022
  Receipt Date: 20071010
  Transmission Date: 20080405
  Serious: Yes (Other)
  Sender: FDA-Public Use
  Company Number: US-BRISTOL-MYERS SQUIBB COMPANY-13861323

PATIENT
  Age: 4 Year
  Sex: Male

DRUGS (4)
  1. CARBOPLATIN [Suspect]
     Indication: RETINOBLASTOMA
  2. CYCLOPHOSPHAMIDE [Suspect]
     Indication: RETINOBLASTOMA
  3. ETOPOSIDE [Suspect]
     Indication: RETINOBLASTOMA
  4. VINCRISTINE SULFATE [Suspect]
     Indication: RETINOBLASTOMA

REACTIONS (1)
  - ACUTE MYELOID LEUKAEMIA [None]
